FAERS Safety Report 15985530 (Version 1)
Quarter: 2019Q1

REPORT INFORMATION
  Report Type: Spontaneous
  Country: US (occurrence: US)
  Receive Date: 20190220
  Receipt Date: 20190220
  Transmission Date: 20190418
  Serious: No
  Sender: FDA-Public Use
  Company Number: US-LANTHEUS-LMI-2018-00130

PATIENT
  Age: 35 Year
  Sex: Female
  Weight: 141 kg

DRUGS (1)
  1. DEFINITY [Suspect]
     Active Substance: PERFLUTREN
     Indication: ECHOCARDIOGRAM
     Dosage: 0.3 ML (UNSPECIFIED AMOUNT OF DEFINITY PREPARED IN 7 ML DILUENT)
     Route: 040
     Dates: start: 20180327, end: 20180327

REACTIONS (9)
  - Urticaria [Recovered/Resolved]
  - Piloerection [Recovered/Resolved]
  - Nausea [Recovered/Resolved]
  - Dyspnoea [Recovered/Resolved]
  - Flushing [Recovered/Resolved]
  - Pruritus [Recovered/Resolved]
  - Erythema [Recovered/Resolved]
  - Rash [Recovered/Resolved]
  - Stress [Recovered/Resolved]

NARRATIVE: CASE EVENT DATE: 20180327
